FAERS Safety Report 6070636-3 (Version None)
Quarter: 2009Q1

REPORT INFORMATION
  Report Type: 
  Country: None (occurrence: None)
  Receive Date: 20090209
  Receipt Date: 20090128
  Transmission Date: 20090719
  Serious: Yes (Disabling)
  Sender: FDA-Public Use
  Company Number: CA-PFIZER INC-2008159922

PATIENT

DRUGS (4)
  1. NORVASC [Suspect]
     Indication: HYPERTENSION
     Dosage: 5 MG, 1X/DAY
     Route: 048
     Dates: start: 20060119, end: 20070730
  2. DIOVAN HCT [Concomitant]
     Dosage: UNK
     Dates: start: 20071217, end: 20090109
  3. ASPIRIN [Concomitant]
     Dosage: UNK
  4. COMBIPATCH [Concomitant]
     Dosage: UNK
     Dates: start: 20000101

REACTIONS (4)
  - OEDEMA PERIPHERAL [None]
  - OSTEOARTHRITIS [None]
  - PAIN IN EXTREMITY [None]
  - PLANTAR FASCIITIS [None]
